FAERS Safety Report 4744014-0 (Version None)
Quarter: 2005Q3

REPORT INFORMATION
  Report Type: 
  Country: None (occurrence: None)
  Receive Date: 20050809
  Receipt Date: 20050726
  Transmission Date: 20060218
  Serious: Yes (Life-Threatening, Hospitalization, Other)
  Sender: FDA-Public Use
  Company Number: GB-2005-015374

PATIENT
  Age: 72 Year
  Sex: Female

DRUGS (11)
  1. SOTALOL HCL [Suspect]
     Dosage: 80 MG 2X/DAY ORAL
     Route: 048
     Dates: start: 20020101
  2. CANDESARTAN (CANDESARTAN) [Concomitant]
  3. ATORVASTATIN CALCIUM [Concomitant]
  4. TOLBUTAMIDE [Concomitant]
  5. FUROSEMIDE [Concomitant]
  6. ASPIRIN [Concomitant]
  7. IPRATROPIUM BROMIDE [Concomitant]
  8. DIGOXIN [Concomitant]
  9. INDAPAMIDE [Concomitant]
  10. PREDNISOLONEC [Concomitant]
  11. ALBUTEROL SULFATE HFA [Concomitant]

REACTIONS (8)
  - DIPLOPIA [None]
  - ELECTROCARDIOGRAM QT CORRECTED INTERVAL PROLONGED [None]
  - FALL [None]
  - GLYCOSYLATED HAEMOGLOBIN INCREASED [None]
  - LOSS OF CONSCIOUSNESS [None]
  - PUBIC RAMI FRACTURE [None]
  - SYNCOPE [None]
  - TROPONIN T INCREASED [None]
